FAERS Safety Report 5640878-7 (Version None)
Quarter: 2008Q1

REPORT INFORMATION
  Report Type: 
  Country: None (occurrence: None)
  Receive Date: 20080227
  Receipt Date: 20080220
  Transmission Date: 20080703
  Serious: Yes (Other)
  Sender: FDA-Public Use
  Company Number: A0712023A

PATIENT
  Age: 57 Year
  Sex: Male

DRUGS (5)
  1. WELLBUTRIN XL [Suspect]
     Indication: DRUG USE FOR UNKNOWN INDICATION
     Dosage: 150MG PER DAY
     Route: 048
  2. HERBAL MEDICATION [Concomitant]
  3. LIPITOR [Concomitant]
  4. TRICOR [Concomitant]
  5. LISINOPRIL [Concomitant]

REACTIONS (5)
  - CHOKING [None]
  - COUGH [None]
  - HYPERSENSITIVITY [None]
  - IRRITABILITY [None]
  - SALIVA ALTERED [None]
